FAERS Safety Report 10456357 (Version 1)
Quarter: 2014Q3

REPORT INFORMATION
  Report Type: Spontaneous
  Country: CA (occurrence: CA)
  Receive Date: 20140916
  Receipt Date: 20140916
  Transmission Date: 20150326
  Serious: Yes (Hospitalization)
  Sender: FDA-Public Use
  Company Number: CA-TARO PHARMACEUTICALS U.S.A., INC-2014SUN02063

PATIENT
  Age: 27 Year
  Sex: Male

DRUGS (3)
  1. TARO-PHENYTOIN ORAL SUSPENSION 125 MG/5 ML [Suspect]
     Active Substance: PHENYTOIN
     Indication: PRODUCT USED FOR UNKNOWN INDICATION
     Dosage: 6 ML, BID (BEFORE 07-OCT-2013)
     Route: 048
     Dates: start: 201205, end: 20131006
  2. TARO-PHENYTOIN ORAL SUSPENSION 125 MG/5 ML [Suspect]
     Active Substance: PHENYTOIN
     Dosage: 7 ML, BID
     Route: 048
     Dates: start: 20131007
  3. TARO-PHENYTOIN ORAL SUSPENSION 125 MG/5 ML [Suspect]
     Active Substance: PHENYTOIN
     Dosage: 175 MG, BID
     Route: 048

REACTIONS (2)
  - Convulsion [Unknown]
  - Drug level decreased [Unknown]

NARRATIVE: CASE EVENT DATE: 2013
